FAERS Safety Report 6710022-3 (Version None)
Quarter: 2010Q2

REPORT INFORMATION
  Report Type: 
  Country: None (occurrence: None)
  Receive Date: 20100503
  Receipt Date: 20100503
  Transmission Date: 20101027
  Serious: Yes (Hospitalization)
  Sender: FDA-Public Use
  Company Number: None

PATIENT
  Age: 6 Year
  Sex: Male
  Weight: 21.3191 kg

DRUGS (2)
  1. CHILDRENS TYENOL PLUS FLU [Suspect]
     Indication: COUGH
     Dosage: 2 TSP. PO
     Route: 048
     Dates: start: 20100425, end: 20100501
  2. CHILDRENS TYENOL PLUS FLU [Suspect]
     Indication: PYREXIA
     Dosage: 2 TSP. PO
     Route: 048
     Dates: start: 20100425, end: 20100501

REACTIONS (4)
  - ARTHRALGIA [None]
  - OEDEMA PERIPHERAL [None]
  - RASH MACULO-PAPULAR [None]
  - RASH PRURITIC [None]
